FAERS Safety Report 10392686 (Version 1)
Quarter: 2014Q3

REPORT INFORMATION
  Report Type: Report from Study
  Country: US (occurrence: None)
  Receive Date: 20140815
  Receipt Date: 20140815
  Transmission Date: 20150326
  Serious: Yes (Hospitalization)
  Sender: FDA-Public Use
  Company Number: VAL_03293_2014

PATIENT
  Sex: Male

DRUGS (11)
  1. CALCITRIOL. [Suspect]
     Active Substance: CALCITRIOL
     Indication: PRODUCT USED FOR UNKNOWN INDICATION
     Route: 048
  2. GENTAMICIN [Concomitant]
     Active Substance: GENTAMICIN
  3. CALCIUM [Concomitant]
     Active Substance: CALCIUM
  4. OXYBUTYNIN [Concomitant]
     Active Substance: OXYBUTYNIN
  5. POLYVISOL [Concomitant]
  6. REGLAN [Concomitant]
     Active Substance: METOCLOPRAMIDE HYDROCHLORIDE
  7. ZANTAC [Concomitant]
     Active Substance: RANITIDINE HYDROCHLORIDE
  8. ERGOCALCIFEROL. [Concomitant]
     Active Substance: ERGOCALCIFEROL
  9. FERROUS SULFATE [Concomitant]
     Active Substance: FERROUS SULFATE\FERROUS SULFATE, DRIED
  10. NACL [Concomitant]
     Active Substance: SODIUM CHLORIDE
  11. EPOGEN [Concomitant]
     Active Substance: ERYTHROPOIETIN

REACTIONS (5)
  - Bone disorder [None]
  - Influenza [None]
  - Haemophilus infection [None]
  - Peritonitis [None]
  - Bronchiolitis [None]
